FAERS Safety Report 16644242 (Version 1)
Quarter: 2019Q3

REPORT INFORMATION
  Report Type: Spontaneous
  Country: FI (occurrence: FI)
  Receive Date: 20190729
  Receipt Date: 20190729
  Transmission Date: 20191004
  Serious: Yes (Life-Threatening)
  Sender: FDA-Public Use
  Company Number: FI-ASTRAZENECA-2019SF06175

PATIENT
  Age: 51 Year
  Sex: Female

DRUGS (6)
  1. KETIPINOR [Suspect]
     Active Substance: QUETIAPINE FUMARATE
     Indication: SLEEP DISORDER
     Dosage: UNKNOWN, EVERY 12 HOURS
     Route: 048
     Dates: start: 2012
  2. ESCITALOPRAM [Suspect]
     Active Substance: ESCITALOPRAM OXALATE
     Indication: PRODUCT USED FOR UNKNOWN INDICATION
     Dosage: STRENGTH: 5MG
  3. PARACETAMOL [Concomitant]
     Active Substance: ACETAMINOPHEN
  4. BURANA [Suspect]
     Active Substance: IBUPROFEN
     Indication: PRODUCT USED FOR UNKNOWN INDICATION
     Dosage: AS NEEDED
     Route: 065
  5. MELATONIN [Suspect]
     Active Substance: MELATONIN
     Indication: PRODUCT USED FOR UNKNOWN INDICATION
     Dosage: STRENGTH: 3MG
     Route: 065
  6. KETIPINOR [Suspect]
     Active Substance: QUETIAPINE FUMARATE
     Indication: ANXIETY
     Dosage: UNKNOWN, EVERY 12 HOURS
     Route: 048
     Dates: start: 2012

REACTIONS (1)
  - Alcoholic pancreatitis [Recovering/Resolving]

NARRATIVE: CASE EVENT DATE: 20190610
